FAERS Safety Report 6035090-6 (Version None)
Quarter: 2009Q1

REPORT INFORMATION
  Report Type: 
  Country: None (occurrence: None)
  Receive Date: 20090112
  Receipt Date: 20090107
  Transmission Date: 20090719
  Serious: Yes (Death, Other)
  Sender: FDA-Public Use
  Company Number: ES-ROXANE LABORATORIES, INC.-2009-RO-00024RO

PATIENT
  Age: 58 Year
  Sex: Male

DRUGS (5)
  1. METHOTREXATE [Suspect]
     Indication: CENTRAL NERVOUS SYSTEM LYMPHOMA
     Route: 042
  2. PIPERACILLIN AND TAZOBACTAM [Suspect]
     Indication: EVIDENCE BASED TREATMENT
  3. CPDG2 [Concomitant]
     Indication: CHEMOTHERAPEUTIC DRUG LEVEL ABOVE THERAPEUTIC
     Route: 042
  4. CHARCOAL HAEMOPERFUSION [Concomitant]
     Indication: CHEMOTHERAPEUTIC DRUG LEVEL ABOVE THERAPEUTIC
  5. LEUCOVORIN CALCIUM [Concomitant]
     Indication: CHEMOTHERAPEUTIC DRUG LEVEL ABOVE THERAPEUTIC

REACTIONS (6)
  - BONE MARROW FAILURE [None]
  - DRUG INTERACTION [None]
  - MUCOSAL INFLAMMATION [None]
  - PYREXIA [None]
  - RENAL FAILURE ACUTE [None]
  - SEPSIS [None]
